FAERS Safety Report 26185407 (Version 1)
Quarter: 2025Q4

REPORT INFORMATION
  Report Type: Spontaneous
  Country: US (occurrence: US)
  Receive Date: 20251222
  Receipt Date: 20251222
  Transmission Date: 20260117
  Serious: Yes (Hospitalization, Other)
  Sender: CELLTRION
  Company Number: US-CELLTRION INC.-2025US019684

PATIENT

DRUGS (8)
  1. RITUXIMAB [Suspect]
     Active Substance: RITUXIMAB
     Indication: Lupus nephritis
     Dosage: TWO 1000 MG I.V. DOSES SEPARATED BY 2 TO 4
     Route: 042
  2. RITUXIMAB [Suspect]
     Active Substance: RITUXIMAB
     Dosage: TWO 1000 MG I.V. DOSES SEPARATED BY 2 TO 4
     Route: 042
  3. RITUXIMAB [Suspect]
     Active Substance: RITUXIMAB
     Dosage: SINGLE 1000 MG I.V. DOSE EVERY 4 TO 6 MONTHS TO START, AS DESCRIBED PREVIOUSLY
     Route: 042
  4. AZATHIOPRINE [Concomitant]
     Active Substance: AZATHIOPRINE
     Dosage: AZA FOR }1Y, MMF FOR }7Y, ATG INDUCTION AND TACROLIMUS MAINTENANCE FOR KIDNEY TRANSPLANT
  5. MYCOPHENOLATE MOFETIL [Concomitant]
     Active Substance: MYCOPHENOLATE MOFETIL
     Dosage: AZA FOR }1Y, MMF FOR }7Y, ATG INDUCTION AND TACROLIMUS MAINTENANCE FOR KIDNEY TRANSPLANT
  6. PREDNISONE [Concomitant]
     Active Substance: PREDNISONE
     Indication: Steroid therapy
     Dosage: PREDNISONE LESS THAN OR EQUAL TO 5 MG/D OR EQUIVALENT FOR } 1 YEAR
  7. LAPINE T-LYMPHOCYTE IMMUNE GLOBULIN [Concomitant]
     Active Substance: LAPINE T-LYMPHOCYTE IMMUNE GLOBULIN
     Indication: Prophylaxis against transplant rejection
  8. TACROLIMUS [Concomitant]
     Active Substance: TACROLIMUS
     Indication: Prophylaxis against transplant rejection

REACTIONS (4)
  - Infection [Unknown]
  - Infection [Unknown]
  - B-lymphocyte count decreased [Unknown]
  - Intentional product use issue [Unknown]
